FAERS Safety Report 8573985 (Version 7)
Quarter: 2013Q2

REPORT INFORMATION
  Report Type: Spontaneous
  Country: US (occurrence: US)
  Receive Date: 20120522
  Receipt Date: 20130405
  Transmission Date: 20140414
  Serious: Yes (Hospitalization, Disabling, Other)
  Sender: FDA-Public Use
  Company Number: US-MSD-1205USA02825

PATIENT
  Sex: Female
  Weight: 60.77 kg

DRUGS (55)
  1. FOSAMAX [Suspect]
     Dosage: 70 MG, QW
     Route: 048
     Dates: start: 2002, end: 201103
  2. FOSAMAX [Suspect]
     Indication: OSTEOPENIA
     Dosage: 70 MG, UNK
     Route: 048
  3. BIOTIN [Concomitant]
     Dosage: 200 MICROGRAM,
  4. VITAMIN D (UNSPECIFIED) [Concomitant]
     Dosage: 1000 IU, UNK
  5. LEVOCARNITINE [Concomitant]
     Dosage: 500 MG, UNK
  6. POTASSIUM (UNSPECIFIED) [Concomitant]
     Dosage: 99 MG, UNK
  7. CHROMIUM PICOLINATE [Concomitant]
     Dosage: 200 MICROGRAM, UNK
  8. MILK THISTLE [Concomitant]
     Dosage: 1000 MG, UNK
  9. THIOCTIC ACID [Concomitant]
     Dosage: 100 MG, UNK
  10. BLACK COHOSH [Concomitant]
     Dosage: 540 MG, UNK
  11. ST JOHNS WORT [Concomitant]
     Dosage: 150 MG, UNK
  12. HAWTHORN [Concomitant]
     Dosage: 565 MG, UNK
  13. UBIDECARENONE [Concomitant]
     Dosage: 120 MG, UNK
  14. VITAMIN E [Concomitant]
     Dosage: 400 IU, UNK
  15. GINSENG (UNSPECIFIED) [Concomitant]
     Dosage: 500 MG, UNK
  16. CRANBERRY [Concomitant]
     Dosage: 140 MG, UNK
  17. GINKGO [Concomitant]
     Dosage: 60 MG, UNK
  18. ZINC (UNSPECIFIED) [Concomitant]
     Dosage: 50 MG, UNK
  19. CINNAMON [Concomitant]
     Dosage: 500 MG, UNK
  20. RESVERATROL [Concomitant]
     Dosage: 50 MG, UNK
  21. EVENING PRIMROSE OIL [Concomitant]
     Dosage: 500 MG, UNK
  22. TURMERIC [Concomitant]
     Dosage: 400 MG, UNK
  23. GINGER [Concomitant]
     Dosage: 500 MG, UNK
  24. VITAMINS (UNSPECIFIED) [Concomitant]
     Dosage: UNK
  25. CALCIUM (UNSPECIFIED) [Concomitant]
     Dosage: 1200 MG, UNK
  26. BROMELAINS [Concomitant]
     Dosage: 500 MG, UNK
  27. BORON (UNSPECIFIED) [Concomitant]
     Dosage: 500 MG, UNK
  28. OMEGA-3 MARINE TRIGLYCERIDES [Concomitant]
     Dosage: 1000 MG, UNK
  29. XANTHOPHYLL [Concomitant]
     Dosage: 6 MG, UNK
  30. GLUCOSAMINE [Concomitant]
     Dosage: 1500 MG, UNK
  31. PSYLLIUM HUSK [Concomitant]
     Dosage: 500 MG, UNK
  32. MELATONIN [Concomitant]
     Dosage: 10 MG, UNK
  33. TAURINE [Concomitant]
     Dosage: 500 MG, UNK
  34. VALERIAN [Concomitant]
     Dosage: 450 MG, UNK
  35. MAGNESIUM (UNSPECIFIED) [Concomitant]
     Dosage: 30 MG, UNK
  36. GOTU KOLA [Concomitant]
     Dosage: 250 MG, UNK
  37. INOSITOL [Concomitant]
     Dosage: 650 MG, UNK
  38. 3-ACETYL-7-OXO-DEHYDROEPIANDROSTERONE [Concomitant]
     Dosage: 25 MG, UNK
  39. SOUR CHERRY [Concomitant]
     Dosage: 1000 MG, UNK
  40. NIACIN [Concomitant]
     Dosage: 500 MG, UNK
  41. GARLIC [Concomitant]
     Dosage: 500 MG, UNK
  42. FLAXSEED [Concomitant]
     Dosage: 1000 MG, UNK
  43. CABBAGE PALM [Concomitant]
     Dosage: 1000 MG, UNK
  44. GRAPE SEEDS [Concomitant]
     Dosage: 50 MG, UNK
  45. ARGININE [Concomitant]
     Dosage: 500 MG, UNK
  46. LACTOBACILLUS ACIDOPHILUS (+) VITAMIN B COMPLEX [Concomitant]
     Dosage: 500 MG, UNK
  47. SELENIUM (UNSPECIFIED) [Concomitant]
     Dosage: 200 MG, UNK
  48. BONIVA [Suspect]
     Indication: OSTEOPOROSIS
     Dosage: 150 MG, UNK
     Route: 048
     Dates: start: 2005, end: 2008
  49. BONIVA [Suspect]
     Indication: OSTEOPENIA
  50. ACTONEL [Suspect]
     Indication: OSTEOPOROSIS
     Dosage: 35 MG, QW
     Route: 048
     Dates: start: 2008, end: 200903
  51. ACTONEL [Suspect]
     Indication: OSTEOPENIA
  52. ALENDRONATE SODIUM [Suspect]
     Dosage: 70 MG, QW
     Route: 048
     Dates: start: 20090528, end: 20091214
  53. ALENDRONATE SODIUM [Suspect]
     Dosage: 70 MG, QW
     Route: 048
     Dates: start: 20100422, end: 20100707
  54. ALENDRONATE SODIUM [Suspect]
     Dosage: 70 MG, QD
     Route: 048
     Dates: start: 20100914
  55. ALENDRONATE SODIUM [Suspect]
     Indication: OSTEOPENIA
     Dosage: 70 MG, QW
     Route: 048
     Dates: start: 20101214

REACTIONS (53)
  - Femur fracture [Recovered/Resolved]
  - Intramedullary rod insertion [Unknown]
  - Fall [Unknown]
  - Anaemia postoperative [Unknown]
  - Osteoporosis [Not Recovered/Not Resolved]
  - Stress fracture [Not Recovered/Not Resolved]
  - Low turnover osteopathy [Not Recovered/Not Resolved]
  - Deep vein thrombosis [Unknown]
  - Hip arthroplasty [Unknown]
  - Deep vein thrombosis [Unknown]
  - Thrombophlebitis superficial [Unknown]
  - Type V hyperlipidaemia [Unknown]
  - Foot fracture [Unknown]
  - Limb asymmetry [Unknown]
  - Gait disturbance [Unknown]
  - Injury [Unknown]
  - Dislocation of vertebra [Unknown]
  - Joint dislocation [Unknown]
  - Dislocation of vertebra [Unknown]
  - Spinal pain [Unknown]
  - Spinal pain [Unknown]
  - Mumps [Unknown]
  - Measles [Unknown]
  - Diabetes mellitus [Unknown]
  - Hypertension [Unknown]
  - Arthritis [Unknown]
  - Cardiac disorder [Unknown]
  - Hypothyroidism [Unknown]
  - Fall [Unknown]
  - Hypercholesterolaemia [Unknown]
  - Insomnia [Unknown]
  - Hot flush [Unknown]
  - Atrophic vulvovaginitis [Unknown]
  - Haemorrhoids [Unknown]
  - Nasal congestion [Unknown]
  - Weight increased [Unknown]
  - Fall [Unknown]
  - Radius fracture [Unknown]
  - Thrombophlebitis superficial [Unknown]
  - Somatoform disorder [Unknown]
  - Epidural fibrosis [Unknown]
  - Lumbar radiculopathy [Unknown]
  - Intervertebral disc degeneration [Unknown]
  - Cystocele [Unknown]
  - Ligament sprain [Unknown]
  - Varicose vein [Unknown]
  - Transfusion [Unknown]
  - Muscle strain [Unknown]
  - Joint dislocation [Unknown]
  - Constipation [Unknown]
  - Headache [Unknown]
  - Neck pain [Unknown]
  - Muscle spasms [Unknown]
